FAERS Safety Report 5020761-0 (Version None)
Quarter: 2006Q2

REPORT INFORMATION
  Report Type: 
  Country: None (occurrence: None)
  Receive Date: 20060608
  Receipt Date: 20060530
  Transmission Date: 20061013
  Serious: Yes (Hospitalization)
  Sender: FDA-Public Use
  Company Number: JP-JNJFOC-20050603621

PATIENT
  Sex: Male
  Weight: 64 kg

DRUGS (21)
  1. REMICADE [Suspect]
     Dosage: 20 MG
     Route: 042
  2. REMICADE [Suspect]
     Route: 042
  3. REMICADE [Suspect]
     Route: 042
  4. REMICADE [Suspect]
     Route: 042
  5. REMICADE [Suspect]
     Indication: RHEUMATOID ARTHRITIS
     Route: 042
  6. INH [Concomitant]
     Indication: ANTIBIOTIC PROPHYLAXIS
     Route: 048
  7. PREDONINE [Concomitant]
     Route: 048
  8. PREDONINE [Concomitant]
     Indication: RHEUMATOID ARTHRITIS
     Route: 048
  9. MOVER [Concomitant]
     Indication: RHEUMATOID ARTHRITIS
     Route: 048
  10. MOBIC [Concomitant]
     Indication: RHEUMATOID ARTHRITIS
     Route: 048
  11. LOXONIN [Concomitant]
     Indication: RHEUMATOID ARTHRITIS
     Route: 048
  12. GASTER D [Concomitant]
     Route: 048
  13. FARNERATE [Concomitant]
     Dosage: 25G, 1 TUBE
  14. MOHRUS TAPE [Concomitant]
  15. NIZORAL [Concomitant]
     Dosage: 10G, 1 TUBE
  16. ISODINE GARGLE [Concomitant]
     Route: 049
  17. PL [Concomitant]
     Route: 048
  18. MEDICON [Concomitant]
     Route: 048
  19. ORADOL [Concomitant]
     Route: 049
  20. ADRENAL HORMONE PREPARATIONS [Concomitant]
     Indication: RHEUMATOID ARTHRITIS
     Route: 065
  21. RHEUMATREX [Concomitant]
     Indication: RHEUMATOID ARTHRITIS
     Route: 048

REACTIONS (7)
  - ARTHRALGIA [None]
  - BLOOD PRESSURE DECREASED [None]
  - CHILLS [None]
  - DYSPNOEA [None]
  - INFUSION RELATED REACTION [None]
  - PYREXIA [None]
  - WHITE BLOOD CELL COUNT INCREASED [None]
